FAERS Safety Report 24968042 (Version 1)
Quarter: 2025Q1

REPORT INFORMATION
  Report Type: Spontaneous
  Country: US (occurrence: US)
  Receive Date: 20250214
  Receipt Date: 20250214
  Transmission Date: 20250409
  Serious: Yes (Hospitalization)
  Sender: AVEO PHARMACEUTICALS
  Company Number: US-AVEO PHARMACEUTICALS, INC.-2024-AVEO-US000870

PATIENT

DRUGS (2)
  1. FOTIVDA [Suspect]
     Active Substance: TIVOZANIB HYDROCHLORIDE
     Indication: Renal cell carcinoma
     Dosage: 1.34 MG, DAILY FOR 21 DAYS WITH 7 DAYS OFF (28-DAY CYCLE)
     Route: 048
     Dates: start: 20241013, end: 2024
  2. FOTIVDA [Suspect]
     Active Substance: TIVOZANIB HYDROCHLORIDE
     Route: 048
     Dates: start: 2024

REACTIONS (1)
  - Neoplasm progression [Unknown]
